FAERS Safety Report 6639899-7 (Version None)
Quarter: 2010Q1

REPORT INFORMATION
  Report Type: 
  Country: None (occurrence: None)
  Receive Date: 20100315
  Receipt Date: 20100303
  Transmission Date: 20100710
  Serious: Yes (Hospitalization, Other)
  Sender: FDA-Public Use
  Company Number: 2010AL001361

PATIENT
  Age: 44 Year
  Sex: Female

DRUGS (6)
  1. DIAZEPAM [Suspect]
  2. NITRAZEPAM [Concomitant]
  3. CLOZARIL [Concomitant]
  4. NICOTINE [Concomitant]
  5. BACLOFORTE [Concomitant]
  6. . [Concomitant]

REACTIONS (6)
  - BRONCHITIS [None]
  - FEELING ABNORMAL [None]
  - INFLUENZA LIKE ILLNESS [None]
  - LEUKOPENIA [None]
  - NEUTROPHIL COUNT DECREASED [None]
  - RESPIRATORY TRACT INFECTION VIRAL [None]
